FAERS Safety Report 10238352 (Version 1)
Quarter: 2014Q2

REPORT INFORMATION
  Report Type: Report from Study
  Country: AU (occurrence: AU)
  Receive Date: 20140616
  Receipt Date: 20140616
  Transmission Date: 20141212
  Serious: Yes (Other)
  Sender: FDA-Public Use
  Company Number: AU-ROCHE-1418597

PATIENT
  Age: 54 Year
  Sex: Female

DRUGS (2)
  1. VEMURAFENIB [Suspect]
     Indication: METASTATIC MALIGNANT MELANOMA
     Route: 065
  2. PREDNISONE [Concomitant]
     Dosage: TAPERED OVER 4 WEEKS
     Route: 048

REACTIONS (3)
  - Panniculitis lobular [Recovered/Resolved]
  - Septal panniculitis [Recovered/Resolved]
  - Arthralgia [Unknown]
